FAERS Safety Report 19112389 (Version 5)
Quarter: 2021Q2

REPORT INFORMATION
  Report Type: Report from Study
  Country: HN (occurrence: HN)
  Receive Date: 20210409
  Receipt Date: 20210602
  Transmission Date: 20210717
  Serious: Yes (Hospitalization)
  Sender: FDA-Public Use
  Company Number: HN-BIOGEN-2021BI00998041

PATIENT
  Age: 70 Year
  Sex: Female
  Weight: 76 kg

DRUGS (4)
  1. AVONEX [Suspect]
     Active Substance: INTERFERON BETA-1A
     Route: 030
     Dates: start: 20071001
  2. AVONEX [Suspect]
     Active Substance: INTERFERON BETA-1A
     Route: 030
  3. AVONEX [Suspect]
     Active Substance: INTERFERON BETA-1A
     Indication: RELAPSING MULTIPLE SCLEROSIS
     Route: 030
     Dates: start: 20071001
  4. AVONEX [Suspect]
     Active Substance: INTERFERON BETA-1A

REACTIONS (6)
  - Prescribed underdose [Recovered/Resolved]
  - Anxiety [Unknown]
  - Fatigue [Not Recovered/Not Resolved]
  - Feeling cold [Unknown]
  - COVID-19 [Recovered/Resolved]
  - Chills [Recovered/Resolved]

NARRATIVE: CASE EVENT DATE: 20210325
